FAERS Safety Report 9959589 (Version 1)
Quarter: 2014Q1

REPORT INFORMATION
  Report Type: Report from Study
  Country: US (occurrence: US)
  Receive Date: 20140305
  Receipt Date: 20140305
  Transmission Date: 20141002
  Serious: No
  Sender: FDA-Public Use
  Company Number: US-ABBVIE-13P-163-1105867-00

PATIENT
  Age: 62 Year
  Sex: Male

DRUGS (6)
  1. HUMIRA [Suspect]
     Indication: PSORIASIS
     Dates: start: 20130423
  2. LOSARTAN/HCTZ [Concomitant]
     Indication: HYPERTENSION
     Dosage: 12.5MG DAILY
  3. ZOLPIDEM [Concomitant]
     Indication: INSOMNIA
     Dosage: 10MG DAILY
  4. CITALOPRAM [Concomitant]
     Indication: ANXIETY
     Dosage: 20MG DAILY
  5. CITALOPRAM [Concomitant]
     Indication: DEPRESSION
  6. OXYCODONE [Concomitant]
     Indication: PAIN

REACTIONS (1)
  - Injection site pain [Recovered/Resolved]
